FAERS Safety Report 7705496-5 (Version None)
Quarter: 2011Q3

REPORT INFORMATION
  Report Type: 
  Country: None (occurrence: None)
  Receive Date: 20110823
  Receipt Date: 20110823
  Transmission Date: 20111222
  Serious: No
  Sender: FDA-Public Use
  Company Number: None

PATIENT
  Sex: Female

DRUGS (1)
  1. PEGASYS [Suspect]
     Dosage: INJECT 180MCG (0.5ML) SUBCUTANEOUSLY EVERY WEEK **KEEP REFRIDGERATED** 180 MCG/0.5ML SC
     Route: 058

REACTIONS (1)
  - CONVULSION [None]
